FAERS Safety Report 7470580-0 (Version None)
Quarter: 2011Q2

REPORT INFORMATION
  Report Type: 
  Country: None (occurrence: None)
  Receive Date: 20110510
  Receipt Date: 20110328
  Transmission Date: 20111010
  Serious: Yes (Other)
  Sender: FDA-Public Use
  Company Number: US-BAYER-201039037NA

PATIENT
  Age: 40 Year
  Sex: Female
  Weight: 90.703 kg

DRUGS (4)
  1. XANAX [Concomitant]
  2. AVAPRO [Concomitant]
  3. YAZ [Suspect]
     Indication: PRODUCT USED FOR UNKNOWN INDICATION
     Route: 048
     Dates: start: 20060601
  4. LEXAPRO [Concomitant]

REACTIONS (2)
  - GALLBLADDER NON-FUNCTIONING [None]
  - CHOLECYSTITIS [None]
